FAERS Safety Report 9893215 (Version 2)
Quarter: 2014Q1

REPORT INFORMATION
  Report Type: Spontaneous
  Country: DE (occurrence: DE)
  Receive Date: 20140213
  Receipt Date: 20140219
  Transmission Date: 20141002
  Serious: Yes (Life-Threatening, Hospitalization)
  Sender: FDA-Public Use
  Company Number: DE-ROCHE-1347277

PATIENT
  Age: 71 Year
  Sex: Male
  Weight: 94 kg

DRUGS (7)
  1. MABTHERA [Suspect]
     Indication: CHRONIC LYMPHOCYTIC LEUKAEMIA
     Dosage: LAST DOSE PRIOR TO EVENT WAS ON 15-JAN-2014
     Route: 042
  2. BENDAMUSTINE [Suspect]
     Indication: CHRONIC LYMPHOCYTIC LEUKAEMIA
     Dosage: CYCLE 3
     Route: 042
     Dates: start: 20131126
  3. MARCUMAR [Concomitant]
  4. MADOPAR [Concomitant]
     Indication: PARKINSON^S DISEASE
     Route: 048
  5. L-THYROXIN [Concomitant]
     Indication: HYPOTHYROIDISM
     Route: 048
  6. ASS [Concomitant]
     Indication: CORONARY ARTERY DISEASE
     Route: 048
  7. BISOPROLOL [Concomitant]
     Indication: CORONARY ARTERY DISEASE
     Route: 048

REACTIONS (2)
  - Renal failure acute [Not Recovered/Not Resolved]
  - Blood creatinine increased [Unknown]
